FAERS Safety Report 13212900 (Version 2)
Quarter: 2017Q3

REPORT INFORMATION
  Report Type: Spontaneous
  Country: US (occurrence: US)
  Receive Date: 20170210
  Receipt Date: 20170911
  Transmission Date: 20171127
  Serious: No
  Sender: FDA-Public Use
  Company Number: US-TEVA-733302ACC

PATIENT
  Sex: Female

DRUGS (14)
  1. EFFEXOR [Concomitant]
     Active Substance: VENLAFAXINE HYDROCHLORIDE
  2. ATORVASTATIN [Concomitant]
     Active Substance: ATORVASTATIN
  3. VENLAFAXINE [Concomitant]
     Active Substance: VENLAFAXINE HYDROCHLORIDE
  4. PREMPRO [Concomitant]
     Active Substance: ESTROGENS, CONJUGATED\MEDROXYPROGESTERONE ACETATE
  5. VITAMIN D3 [Concomitant]
     Active Substance: CHOLECALCIFEROL
  6. COPAXONE [Suspect]
     Active Substance: GLATIRAMER ACETATE
     Indication: MULTIPLE SCLEROSIS
     Route: 058
     Dates: start: 20160305
  7. SYNTHROID [Concomitant]
     Active Substance: LEVOTHYROXINE SODIUM
  8. LIPITOR [Concomitant]
     Active Substance: ATORVASTATIN CALCIUM
  9. GABAPENTIN. [Concomitant]
     Active Substance: GABAPENTIN
  10. METFORMIN [Concomitant]
     Active Substance: METFORMIN HYDROCHLORIDE
  11. DULCOLAX [Concomitant]
  12. AMANTADINE. [Concomitant]
     Active Substance: AMANTADINE HYDROCHLORIDE
  13. TOPAMAX [Concomitant]
     Active Substance: TOPIRAMATE
  14. MODAFINIL. [Concomitant]
     Active Substance: MODAFINIL

REACTIONS (1)
  - Injection site pruritus [Not Recovered/Not Resolved]

NARRATIVE: CASE EVENT DATE: 2016
